FAERS Safety Report 5357670-3 (Version None)
Quarter: 2007Q2

REPORT INFORMATION
  Report Type: 
  Country: None (occurrence: None)
  Receive Date: 20070612
  Receipt Date: 20070529
  Transmission Date: 20071010
  Serious: Yes (Other)
  Sender: FDA-Public Use
  Company Number: T200500014

PATIENT
  Age: 9 Year
  Sex: Male

DRUGS (4)
  1. PHOSPHOCOL P32 [Suspect]
     Indication: HAEMOPHILIC ARTHROPATHY
     Dosage: SEE IMAGE
     Dates: start: 19940301, end: 19940301
  2. PHOSPHOCOL P32 [Suspect]
     Indication: SYNOVITIS
     Dosage: SEE IMAGE
     Dates: start: 19940301, end: 19940301
  3. PHOSPHOCOL P32 [Suspect]
     Indication: HAEMOPHILIC ARTHROPATHY
     Dosage: SEE IMAGE
     Dates: start: 19941101, end: 19941101
  4. PHOSPHOCOL P32 [Suspect]
     Indication: SYNOVITIS
     Dosage: SEE IMAGE
     Dates: start: 19941101, end: 19941101

REACTIONS (11)
  - ACUTE LYMPHOCYTIC LEUKAEMIA [None]
  - ALVEOLITIS NECROTISING [None]
  - B PRECURSOR TYPE ACUTE LEUKAEMIA [None]
  - BRONCHIOLITIS [None]
  - DEMYELINATION [None]
  - DRUG TOXICITY [None]
  - NERVOUS SYSTEM DISORDER [None]
  - PARTIAL SEIZURES [None]
  - POOR VENOUS ACCESS [None]
  - RESPIRATORY SYNCYTIAL VIRUS INFECTION [None]
  - VENOOCCLUSIVE DISEASE [None]
